FAERS Safety Report 25572028 (Version 4)
Quarter: 2025Q3

REPORT INFORMATION
  Report Type: Spontaneous
  Country: CA (occurrence: CA)
  Receive Date: 20250717
  Receipt Date: 20250912
  Transmission Date: 20251021
  Serious: Yes (Other)
  Sender: PFIZER
  Company Number: CA-PFIZER INC-202500135940

PATIENT
  Age: 42 Year
  Sex: Female

DRUGS (10)
  1. IXIFI [Suspect]
     Active Substance: INFLIXIMAB-QBTX
     Indication: Rheumatoid arthritis
     Route: 042
     Dates: start: 20250609
  2. IXIFI [Suspect]
     Active Substance: INFLIXIMAB-QBTX
     Route: 042
     Dates: start: 20250825
  3. CYCLOBENZAPRINE [Concomitant]
     Active Substance: CYCLOBENZAPRINE
  4. DOXEPIN [Concomitant]
     Active Substance: DOXEPIN
  5. DOMPERIDONE [Concomitant]
     Active Substance: DOMPERIDONE
  6. HYDROMORPHONE [Concomitant]
     Active Substance: HYDROMORPHONE
  7. METHOTREXATE [Concomitant]
     Active Substance: METHOTREXATE
  8. NOVELON [DESOGESTREL;ETHINYLESTRADIOL] [Concomitant]
  9. PREDNISONE [Concomitant]
     Active Substance: PREDNISONE
  10. PREGABALIN [Concomitant]
     Active Substance: PREGABALIN

REACTIONS (1)
  - Gastrointestinal disorder [Unknown]
